FAERS Safety Report 23533372 (Version 1)
Quarter: 2024Q1

REPORT INFORMATION
  Report Type: Spontaneous
  Country: CN (occurrence: CN)
  Receive Date: 20240216
  Receipt Date: 20240216
  Transmission Date: 20240409
  Serious: Yes (Other)
  Sender: FDA-Public Use
  Company Number: CN-GUERBET / FUNDTRIP PHARMACEUTICALS-CN-20240053

PATIENT
  Age: 74 Year
  Sex: Female

DRUGS (2)
  1. IOVERSOL [Suspect]
     Active Substance: IOVERSOL
     Indication: Angiogram
     Dosage: DOSE=120?ML
  2. IOVERSOL [Suspect]
     Active Substance: IOVERSOL
     Dosage: 120?ML

REACTIONS (1)
  - Contrast encephalopathy [Recovering/Resolving]
